FAERS Safety Report 9450494 (Version 1)
Quarter: 2013Q3

REPORT INFORMATION
  Report Type: Spontaneous
  Country: US (occurrence: US)
  Receive Date: 20130809
  Receipt Date: 20130809
  Transmission Date: 20140515
  Serious: No
  Sender: FDA-Public Use
  Company Number: US-JNJFOC-20130709758

PATIENT
  Age: 25 Year
  Sex: Male

DRUGS (1)
  1. INVEGA SUSTENNA [Suspect]
     Indication: SCHIZOPHRENIA
     Dosage: STARTED TAKING IT 6 MONTHS AGO
     Route: 030
     Dates: start: 201301, end: 2013

REACTIONS (1)
  - Weight increased [Unknown]
